FAERS Safety Report 21984066 (Version 2)
Quarter: 2023Q1

REPORT INFORMATION
  Report Type: Other
  Country: IN (occurrence: None)
  Receive Date: 20230213
  Receipt Date: 20230215
  Transmission Date: 20230417
  Serious: Yes (Death, Hospitalization, Other)
  Sender: FDA-Public Use
  Company Number: IN-ROCHE-2537253

PATIENT
  Age: 51 Year
  Sex: Female

DRUGS (1)
  1. KADCYLA [Suspect]
     Active Substance: ADO-TRASTUZUMAB EMTANSINE
     Indication: Breast cancer metastatic
     Dosage: FORMULATION : INJECTION
     Route: 042
     Dates: start: 20190316

REACTIONS (9)
  - Platelet count decreased [Unknown]
  - COVID-19 [Unknown]
  - Haemoglobin decreased [Unknown]
  - Red blood cell count decreased [Unknown]
  - Lymphocyte count decreased [Unknown]
  - Cardiac arrest [Fatal]
  - Cough [Unknown]
  - Pyrexia [Unknown]
  - Pleural effusion [Unknown]
